FAERS Safety Report 7474617-4 (Version None)
Quarter: 2011Q1

REPORT INFORMATION
  Report Type: 
  Country: None (occurrence: None)
  Receive Date: 20110302
  Receipt Date: 20100706
  Transmission Date: 20110831
  Serious: Yes (Other)
  Sender: FDA-Public Use
  Company Number: 163-21880-10061750

PATIENT
  Age: 62 Year
  Sex: Male

DRUGS (1)
  1. REVLIMID [Suspect]
     Indication: CHRONIC LYMPHOCYTIC LEUKAEMIA
     Dosage: 5 MG, DAILY AT BEDTIME, PO
     Route: 048
     Dates: start: 20100607, end: 20100601

REACTIONS (6)
  - THROMBOCYTOPENIA [None]
  - PYREXIA [None]
  - CHRONIC LYMPHOCYTIC LEUKAEMIA [None]
  - HYPERHIDROSIS [None]
  - COLD SWEAT [None]
  - RASH ERYTHEMATOUS [None]
